FAERS Safety Report 13858606 (Version 1)
Quarter: 2017Q3

REPORT INFORMATION
  Report Type: Spontaneous
  Country: RO (occurrence: RO)
  Receive Date: 20170811
  Receipt Date: 20170811
  Transmission Date: 20171127
  Serious: Yes (Other)
  Sender: FDA-Public Use
  Company Number: RO-SUN PHARMACEUTICAL INDUSTRIES LTD-2017RR-147411

PATIENT
  Age: 68 Year
  Sex: Male

DRUGS (4)
  1. LEUPROLIDE [Suspect]
     Active Substance: LEUPROLIDE
     Indication: GASTROINTESTINAL STROMAL TUMOUR
  2. IMATINIB [Suspect]
     Active Substance: IMATINIB
     Indication: GASTROINTESTINAL STROMAL TUMOUR
     Dosage: 400 MG, DAILY
     Route: 065
  3. LEUPROLIDE [Suspect]
     Active Substance: LEUPROLIDE
     Indication: PROSTATE CANCER
     Dosage: 11.25 MG, DAILY
     Route: 065
  4. IMATINIB [Suspect]
     Active Substance: IMATINIB
     Indication: PROSTATE CANCER

REACTIONS (4)
  - Anaemia [Recovered/Resolved]
  - Thrombocytopenia [Unknown]
  - Disease progression [Unknown]
  - Drug effect incomplete [Unknown]
